FAERS Safety Report 5333669-8 (Version None)
Quarter: 2007Q2

REPORT INFORMATION
  Report Type: 
  Country: None (occurrence: None)
  Receive Date: 20070524
  Receipt Date: 20070522
  Transmission Date: 20071010
  Serious: Yes (Hospitalization)
  Sender: FDA-Public Use
  Company Number: A0652421A

PATIENT
  Age: 59 Year
  Sex: Female

DRUGS (2)
  1. AVANDIA [Suspect]
     Dosage: 4MG TWICE PER DAY
     Route: 048
     Dates: start: 20000101
  2. NO CONCURRENT MEDICATION [Concomitant]

REACTIONS (2)
  - ARTERIOSCLEROSIS CORONARY ARTERY [None]
  - CORONARY ARTERIAL STENT INSERTION [None]
